FAERS Safety Report 8211074-4 (Version None)
Quarter: 2012Q1

REPORT INFORMATION
  Report Type: 
  Country: None (occurrence: None)
  Receive Date: 20120315
  Receipt Date: 20120312
  Transmission Date: 20120608
  Serious: Yes (Hospitalization)
  Sender: FDA-Public Use
  Company Number: PHHY2012PK021905

PATIENT
  Age: 44 Year
  Sex: Male

DRUGS (4)
  1. PROCYCLIDINE HYDROCHLORIDE 2MG TAB [Concomitant]
     Indication: EXTRAPYRAMIDAL DISORDER
     Dosage: UNK UKN, UNK
     Route: 048
     Dates: start: 20120222
  2. FLUPHENAZINE [Concomitant]
     Dosage: UNK UKN, UNK
     Route: 030
     Dates: start: 20120229
  3. CLOZARIL [Suspect]
     Indication: SCHIZOPHRENIA
     Dosage: 25 MG, BID
     Route: 048
     Dates: start: 20120217, end: 20120224
  4. QUETIAPINE [Concomitant]
     Dosage: 25 MG, (0+0+1)
     Route: 048
     Dates: start: 20120222

REACTIONS (2)
  - TRAUMATIC HAEMATOMA [None]
  - PLATELET COUNT DECREASED [None]
